FAERS Safety Report 6223564-4 (Version None)
Quarter: 2009Q2

REPORT INFORMATION
  Report Type: 
  Country: None (occurrence: None)
  Receive Date: 20090610
  Receipt Date: 20090602
  Transmission Date: 20091009
  Serious: Yes (Other)
  Sender: FDA-Public Use
  Company Number: UKP09000119

PATIENT
  Age: 62 Year
  Sex: 0

DRUGS (3)
  1. ACTONEL [Suspect]
     Indication: OSTEOPOROSIS
     Dosage: 35 MG, 1 ONLY, ORAL
     Route: 048
     Dates: start: 20090507, end: 20090507
  2. AMITRIPTYLINE HYDROCHLORIDE [Concomitant]
  3. CALCICHEW D3 (CALCIUM CARBONATE, COLECALCIFEROL) [Concomitant]

REACTIONS (1)
  - DIARRHOEA HAEMORRHAGIC [None]
